FAERS Safety Report 4706337-0 (Version None)
Quarter: 2005Q3

REPORT INFORMATION
  Report Type: 
  Country: None (occurrence: None)
  Receive Date: 20050705
  Receipt Date: 20050624
  Transmission Date: 20060218
  Serious: Yes (Hospitalization)
  Sender: FDA-Public Use
  Company Number: CH-BRISTOL-MYERS SQUIBB COMPANY-13015938

PATIENT
  Sex: Male

DRUGS (2)
  1. ABILIFY [Suspect]
     Dosage: INCREASED TO 45 MG/D ON 31-DEC-04 AND CONTINUING.
     Route: 048
     Dates: start: 20041122
  2. SEROQUEL [Suspect]
     Dosage: INITIATED AT 400MG ON 08-OCT-04/350MG(13-18-OCT)/300MG(19-09-NOV)/250 MG(10-22-NOV)/350MG(23-29-DEC)
     Route: 048
     Dates: start: 20041008

REACTIONS (2)
  - ERECTILE DYSFUNCTION [None]
  - PRESCRIBED OVERDOSE [None]
